FAERS Safety Report 6348044-7 (Version None)
Quarter: 2009Q3

REPORT INFORMATION
  Report Type: 
  Country: None (occurrence: None)
  Receive Date: 20090910
  Receipt Date: 20090831
  Transmission Date: 20100115
  Serious: Yes (Hospitalization)
  Sender: FDA-Public Use
  Company Number: JP-SANOFI-SYNTHELABO-A01200909297

PATIENT
  Age: 6 Year
  Sex: Female

DRUGS (3)
  1. ZESULAN [Concomitant]
     Indication: NASOPHARYNGITIS
     Dosage: UNK
     Route: 048
     Dates: end: 20090830
  2. TOMIRON [Concomitant]
     Indication: NASOPHARYNGITIS
     Dosage: UNK
     Route: 048
     Dates: end: 20090829
  3. MYSLEE [Suspect]
     Indication: DRUG PRESCRIBING ERROR
     Dosage: 35 MG
     Route: 048
     Dates: start: 20090830, end: 20090830

REACTIONS (3)
  - ABNORMAL BEHAVIOUR [None]
  - ACCIDENTAL OVERDOSE [None]
  - DRUG DISPENSING ERROR [None]
